FAERS Safety Report 9919703 (Version 1)
Quarter: 2014Q1

REPORT INFORMATION
  Report Type: Spontaneous
  Country: US (occurrence: US)
  Receive Date: 20140224
  Receipt Date: 20140224
  Transmission Date: 20141002
  Serious: Yes (Hospitalization)
  Sender: FDA-Public Use
  Company Number: US-BRISTOL-MYERS SQUIBB COMPANY-20206967

PATIENT
  Age: 54 Year
  Sex: Female
  Weight: 115.64 kg

DRUGS (1)
  1. ABILIFY [Suspect]
     Indication: PSYCHOTIC DISORDER
     Dosage: 3 OR 3.5 MG

REACTIONS (3)
  - Convulsion [Unknown]
  - Loss of consciousness [Unknown]
  - Wrong technique in drug usage process [Unknown]
